FAERS Safety Report 25268550 (Version 2)
Quarter: 2025Q2

REPORT INFORMATION
  Report Type: Spontaneous
  Country: GT (occurrence: GT)
  Receive Date: 20250505
  Receipt Date: 20250509
  Transmission Date: 20250717
  Serious: Yes (Other)
  Sender: ELI LILLY AND COMPANY
  Company Number: GT-ELI_LILLY_AND_COMPANY-GT202504007005

PATIENT
  Age: 50 Year
  Sex: Female

DRUGS (2)
  1. TALTZ [Suspect]
     Active Substance: IXEKIZUMAB
     Indication: Psoriasis
     Route: 065
     Dates: start: 202412
  2. TALTZ [Suspect]
     Active Substance: IXEKIZUMAB
     Route: 065
     Dates: end: 20250410

REACTIONS (9)
  - Jaundice [Recovered/Resolved]
  - Blood urea increased [Unknown]
  - Blood cholesterol [Unknown]
  - Blood triglycerides increased [Unknown]
  - Blood lactate dehydrogenase increased [Unknown]
  - Glycosylated haemoglobin increased [Unknown]
  - Blood glucose increased [Unknown]
  - Urine analysis abnormal [Unknown]
  - Hepatic steatosis [Unknown]

NARRATIVE: CASE EVENT DATE: 20250201
